FAERS Safety Report 21332742 (Version 2)
Quarter: 2023Q1

REPORT INFORMATION
  Report Type: Spontaneous
  Country: US (occurrence: US)
  Receive Date: 20220914
  Receipt Date: 20230105
  Transmission Date: 20230417
  Serious: No
  Sender: FDA-Public Use
  Company Number: US-BRISTOL-MYERS SQUIBB COMPANY-2022-105957

PATIENT
  Age: 61 Year
  Sex: Female
  Weight: 53.523 kg

DRUGS (2)
  1. REVLIMID [Suspect]
     Active Substance: LENALIDOMIDE
     Indication: Plasma cell myeloma
     Dosage: D1-14 Q 21 DAYS.
     Route: 048
     Dates: start: 20220906
  2. REVLIMID [Suspect]
     Active Substance: LENALIDOMIDE
     Dosage: D1-14 Q 21 DAYS.
     Route: 048
     Dates: start: 20220906

REACTIONS (8)
  - Nausea [Not Recovered/Not Resolved]
  - Back pain [Recovered/Resolved]
  - Swelling face [Not Recovered/Not Resolved]
  - Urticaria [Not Recovered/Not Resolved]
  - Decreased appetite [Not Recovered/Not Resolved]
  - Off label use [Unknown]
  - Pruritus [Not Recovered/Not Resolved]
  - Skin burning sensation [Not Recovered/Not Resolved]
